FAERS Safety Report 10732542 (Version 1)
Quarter: 2015Q1

REPORT INFORMATION
  Report Type: Spontaneous
  Country: PT (occurrence: None)
  Receive Date: 20150120
  Receipt Date: 20150120
  Transmission Date: 20150721
  Serious: No
  Sender: FDA-Public Use
  Company Number: PT-LHC-2015001

PATIENT
  Age: 69 Year
  Sex: Female

DRUGS (1)
  1. OXIGENIO MEDICINAL LINDE (OXYGEN) (GAS FOR INHALATION) (VERUM) [Suspect]
     Active Substance: OXYGEN
     Indication: PRODUCT USED FOR UNKNOWN INDICATION
     Route: 055
     Dates: start: 20100114

REACTIONS (2)
  - Device leakage [None]
  - Thermal burn [None]

NARRATIVE: CASE EVENT DATE: 20141223
